FAERS Safety Report 6254132-6 (Version None)
Quarter: 2009Q3

REPORT INFORMATION
  Report Type: 
  Country: None (occurrence: None)
  Receive Date: 20090702
  Receipt Date: 20090622
  Transmission Date: 20100115
  Serious: Yes (Hospitalization)
  Sender: FDA-Public Use
  Company Number: HQWYE699307FEB06

PATIENT
  Sex: Male

DRUGS (28)
  1. SIROLIMUS [Suspect]
     Indication: PROPHYLAXIS AGAINST TRANSPLANT REJECTION
     Dosage: BETWEEN 3 AND 9 MG ONCE DAILY
     Route: 048
     Dates: start: 20031112, end: 20040126
  2. DACLIZUMAB [Suspect]
     Indication: PROPHYLAXIS AGAINST TRANSPLANT REJECTION
     Dosage: 165 MG X 1 DOSE
     Route: 042
     Dates: start: 20031111, end: 20031111
  3. DACLIZUMAB [Suspect]
     Route: 042
     Dates: start: 20031127, end: 20040109
  4. MYCOPHENOLATE MOFETIL [Suspect]
     Indication: PROPHYLAXIS AGAINST TRANSPLANT REJECTION
     Dosage: BETWEEN 1000 AND 2000 MG ONCE DAILY
     Route: 048
     Dates: start: 20031111, end: 20040315
  5. MYCOPHENOLATE MOFETIL [Suspect]
     Route: 048
     Dates: start: 20040301
  6. VALGANCICLOVIR HCL [Suspect]
     Route: 048
     Dates: start: 20040113, end: 20040315
  7. PREDNISONE [Suspect]
     Indication: PROPHYLAXIS AGAINST TRANSPLANT REJECTION
     Dosage: BETWEEN 10 AND 20 MG ONCE DAILY AND THEN ADJUSTED THROUGHOUT THE STUDY
     Route: 048
     Dates: start: 20031113
  8. TACROLIMUS [Suspect]
     Indication: PROPHYLAXIS AGAINST TRANSPLANT REJECTION
     Route: 048
     Dates: start: 20040212
  9. CALCITRIOL [Concomitant]
     Dosage: UNSPECIFIED
     Dates: start: 20031118
  10. CO-TRIMAZOLE ^DAKOTA PHARM^ [Concomitant]
     Dosage: UNSPECIFIED
     Dates: start: 20031113
  11. AMLODIPINE BESILATE [Concomitant]
     Dosage: UNSPECIFIED
     Dates: start: 20031116
  12. CARVEDILOL [Concomitant]
     Dosage: UNSPECIFIED
     Dates: start: 20031125
  13. FERROUS SULFATE TAB [Concomitant]
     Dosage: UNSPECIFIED
     Dates: start: 20031121, end: 20040115
  14. DOXAZOSIN MESILATE [Concomitant]
     Dosage: UNSPECIFIED
     Dates: start: 20040108, end: 20040707
  15. EPOGEN [Concomitant]
     Dosage: UNSPECIFIED
     Dates: start: 20040309, end: 20040312
  16. DIACEPAN ^PRODES^ [Concomitant]
     Dosage: UNSPECIFIED
     Dates: start: 20040307, end: 20040312
  17. NIACIN [Concomitant]
     Dosage: UNSPECIFIED
     Dates: start: 20040205, end: 20040217
  18. SULFAMETHOXAZOLE AND TRIMETHOPRIM [Concomitant]
     Dosage: UNSPECIFIED
     Dates: start: 20031115, end: 20040511
  19. METHYLPREDNISOLONE [Suspect]
     Indication: PROPHYLAXIS AGAINST TRANSPLANT REJECTION
     Route: 042
     Dates: start: 20031111
  20. FILGRASTIM [Concomitant]
  21. VANCOMYCIN [Concomitant]
  22. LEVOFLOXACIN [Concomitant]
  23. ISONIAZID [Concomitant]
  24. GANCICLOVIR [Concomitant]
  25. CIPROFLOXACIN [Concomitant]
  26. CEFTRIAXONE [Concomitant]
  27. AMOXICILLIN AND CLAVULANATE POTASSIUM [Concomitant]
  28. OMEPRAZOLE [Concomitant]
     Dosage: UNSPECIFIED
     Dates: start: 20031111

REACTIONS (5)
  - BONE MARROW TOXICITY [None]
  - CYTOMEGALOVIRUS INFECTION [None]
  - ESCHERICHIA INFECTION [None]
  - PYELONEPHRITIS ACUTE [None]
  - THROMBOTIC MICROANGIOPATHY [None]
